FAERS Safety Report 20469334 (Version 1)
Quarter: 2022Q1

REPORT INFORMATION
  Report Type: Spontaneous
  Country: US (occurrence: None)
  Receive Date: 20220212
  Receipt Date: 20220212
  Transmission Date: 20220423
  Serious: Yes (Other)
  Sender: FDA-Public Use
  Company Number: None

PATIENT
  Age: 28 Year
  Sex: Female
  Weight: 53.1 kg

DRUGS (1)
  1. SINGULAIR [Suspect]
     Active Substance: MONTELUKAST SODIUM
     Indication: Urticaria chronic

REACTIONS (7)
  - Suicidal ideation [None]
  - Paranoia [None]
  - Anxiety [None]
  - Panic reaction [None]
  - Major depression [None]
  - Anxiety disorder [None]
  - Insomnia [None]

NARRATIVE: CASE EVENT DATE: 20200904
